FAERS Safety Report 13901221 (Version 2)
Quarter: 2017Q3

REPORT INFORMATION
  Report Type: Report from Study
  Country: JP (occurrence: JP)
  Receive Date: 20170824
  Receipt Date: 20170904
  Transmission Date: 20171127
  Serious: Yes (Hospitalization)
  Sender: FDA-Public Use
  Company Number: JP-JNJFOC-20170815531

PATIENT
  Age: 80 Year
  Sex: Female
  Weight: 57.1 kg

DRUGS (16)
  1. SPIRAZON [Concomitant]
     Indication: DERMATITIS
     Route: 061
     Dates: start: 20170620
  2. NEOMALLERMIN [Concomitant]
     Active Substance: DEXCHLORPHENIRAMINE MALEATE
     Indication: PUSTULAR PSORIASIS
     Route: 048
  3. SPIRAZON [Concomitant]
     Indication: DERMATITIS
     Route: 061
     Dates: start: 20170725
  4. MAGNESIUM OXIDE. [Concomitant]
     Active Substance: MAGNESIUM OXIDE
     Indication: CONSTIPATION
     Route: 048
     Dates: start: 20170516
  5. XARELTO [Concomitant]
     Active Substance: RIVAROXABAN
     Indication: ARRHYTHMIA
     Route: 048
  6. MAGLAX [Concomitant]
     Active Substance: MAGNESIUM OXIDE
     Indication: CONSTIPATION
     Route: 048
  7. VERAPAMIL HCL [Concomitant]
     Active Substance: VERAPAMIL HYDROCHLORIDE
     Indication: ARRHYTHMIA
     Route: 048
  8. LACTOMIN [Concomitant]
     Active Substance: LACTOBACILLUS ACIDOPHILUS
     Indication: CONSTIPATION
     Route: 048
  9. PROPETO [Concomitant]
     Indication: PUSTULAR PSORIASIS
     Route: 061
     Dates: start: 20160905
  10. KINDALONE [Concomitant]
     Indication: ARTHROPOD BITE
     Route: 061
     Dates: start: 20170502
  11. GUSELKUMAB [Suspect]
     Active Substance: GUSELKUMAB
     Indication: PUSTULAR PSORIASIS
     Route: 058
     Dates: start: 20160824
  12. HIRUDOID [Concomitant]
     Active Substance: GLYCOSAMINOGLYCANS
     Indication: ECZEMA ASTEATOTIC
     Route: 061
     Dates: start: 20170111
  13. ANFLAVATE [Concomitant]
     Active Substance: BETAMETHASONE BUTYRATE PROPIONATE
     Indication: ECZEMA ASTEATOTIC
     Route: 061
     Dates: start: 20170725
  14. FAMOTIDINE. [Concomitant]
     Active Substance: FAMOTIDINE
     Indication: GASTROOESOPHAGEAL REFLUX DISEASE
     Route: 048
  15. OLOPATADINE HYDROCHLORIDE. [Concomitant]
     Active Substance: OLOPATADINE HYDROCHLORIDE
     Indication: PUSTULAR PSORIASIS
     Route: 048
     Dates: start: 20170502
  16. DIGOXIN. [Concomitant]
     Active Substance: DIGOXIN
     Indication: ARRHYTHMIA
     Route: 048

REACTIONS (1)
  - Synovial rupture [Recovered/Resolved]

NARRATIVE: CASE EVENT DATE: 20170812
